FAERS Safety Report 7030187-6 (Version None)
Quarter: 2010Q4

REPORT INFORMATION
  Report Type: 
  Country: None (occurrence: None)
  Receive Date: 20101006
  Receipt Date: 20101005
  Transmission Date: 20110411
  Serious: Yes (Other)
  Sender: FDA-Public Use
  Company Number: BG-BRISTOL-MYERS SQUIBB COMPANY-15319148

PATIENT
  Age: 60 Year
  Sex: Female

DRUGS (4)
  1. SPRYCEL [Suspect]
     Indication: CHRONIC MYELOID LEUKAEMIA
     Route: 048
     Dates: start: 20100401
  2. HYDREA [Suspect]
     Indication: CHRONIC MYELOID LEUKAEMIA
  3. CYTARABINE [Suspect]
     Indication: CHRONIC MYELOID LEUKAEMIA
  4. INTERFERON [Suspect]
     Indication: CHRONIC MYELOID LEUKAEMIA

REACTIONS (1)
  - MYELOFIBROSIS [None]
